FAERS Safety Report 4528668-X (Version None)
Quarter: 2004Q4

REPORT INFORMATION
  Report Type: 
  Country: None (occurrence: None)
  Receive Date: 20041216
  Receipt Date: 20041210
  Transmission Date: 20050328
  Serious: Yes (Life-Threatening, Hospitalization)
  Sender: FDA-Public Use
  Company Number: US-MERCK-0412USA01309

PATIENT
  Age: 51 Year
  Sex: Female

DRUGS (7)
  1. VIOXX [Suspect]
     Indication: ARTHRITIS
     Route: 048
     Dates: start: 20000101, end: 20040930
  2. PLAVIX [Concomitant]
     Route: 065
  3. DICYCLOMINE HYDROCHLORIDE [Concomitant]
     Route: 065
  4. CLIDINIUM BROMIDE [Concomitant]
     Route: 065
  5. AVAPRO [Concomitant]
     Route: 065
  6. LORAZEPAM [Concomitant]
     Route: 065
  7. [THERAPY UNSPECIFIED] [Concomitant]
     Route: 065

REACTIONS (2)
  - CORONARY ARTERY OCCLUSION [None]
  - TRANSIENT ISCHAEMIC ATTACK [None]
